FAERS Safety Report 5949990-6 (Version None)
Quarter: 2008Q4

REPORT INFORMATION
  Report Type: 
  Country: None (occurrence: None)
  Receive Date: 20081112
  Receipt Date: 20081107
  Transmission Date: 20090506
  Serious: Yes (Death, Hospitalization)
  Sender: FDA-Public Use
  Company Number: US-GILEAD-2008-0016550

PATIENT
  Sex: Male
  Weight: 90.8 kg

DRUGS (17)
  1. LETAIRIS [Suspect]
     Indication: PULMONARY ARTERIAL HYPERTENSION
     Route: 048
     Dates: start: 20080306
  2. ADVAIR DISKUS 500/50 [Concomitant]
     Route: 055
  3. SPIRIVA [Concomitant]
     Route: 055
  4. ALBUTEROL [Concomitant]
     Route: 055
  5. BROVANA [Concomitant]
     Route: 055
  6. ASPIRIN [Concomitant]
     Route: 048
  7. LASIX [Concomitant]
     Route: 048
  8. PREDNISONE TAB [Concomitant]
     Route: 048
  9. LEVAQUIN [Concomitant]
     Route: 048
  10. LYRICA [Concomitant]
     Route: 048
  11. PERCOCET [Concomitant]
     Route: 048
  12. GLUCOSAMINE + CHONDROITIN [Concomitant]
     Route: 048
  13. POTASSIUM CHLORIDE [Concomitant]
     Route: 048
  14. MAGNESIUM SULFATE [Concomitant]
     Route: 048
  15. GINKGO BILOBA [Concomitant]
     Route: 048
  16. PROSTATE HEALTH [Concomitant]
     Route: 048
  17. I CAPS [Concomitant]
     Route: 048

REACTIONS (4)
  - DEATH [None]
  - FLUID RETENTION [None]
  - OEDEMA [None]
  - PNEUMONIA [None]
